FAERS Safety Report 18967265 (Version 1)
Quarter: 2021Q1

REPORT INFORMATION
  Report Type: Spontaneous
  Country: IT (occurrence: IT)
  Receive Date: 20210303
  Receipt Date: 20210303
  Transmission Date: 20210420
  Serious: Yes (Other)
  Sender: FDA-Public Use
  Company Number: IT-AUROBINDO-AUR-APL-2021-008872

PATIENT
  Age: 60 Year
  Sex: Female

DRUGS (2)
  1. PARACETAMOL [Suspect]
     Active Substance: ACETAMINOPHEN
     Indication: TOOTHACHE
     Dosage: 1 DOSAGE FORM TOTAL
     Route: 048
     Dates: start: 20210119, end: 20210119
  2. CIPROXIN [Suspect]
     Active Substance: CIPROFLOXACIN
     Indication: TOOTH INFECTION
     Dosage: 2 DOSAGE FORM, ONCE A DAY
     Route: 048
     Dates: start: 20210118, end: 20210119

REACTIONS (1)
  - Face oedema [Recovering/Resolving]

NARRATIVE: CASE EVENT DATE: 20210119
